FAERS Safety Report 7102473-2 (Version None)
Quarter: 2010Q4

REPORT INFORMATION
  Report Type: 
  Country: None (occurrence: None)
  Receive Date: 20101115
  Receipt Date: 20101110
  Transmission Date: 20110411
  Serious: Yes (Death)
  Sender: FDA-Public Use
  Company Number: IT-ABBOTT-10P-083-0681898-00

PATIENT
  Sex: Male

DRUGS (9)
  1. HUMIRA [Suspect]
     Indication: RHEUMATOID ARTHRITIS
     Route: 058
     Dates: start: 20090701, end: 20100929
  2. PRITORPLUS [Concomitant]
     Indication: PRODUCT USED FOR UNKNOWN INDICATION
     Route: 048
  3. ZYLORIC [Concomitant]
     Indication: PRODUCT USED FOR UNKNOWN INDICATION
  4. DICLOREUM [Concomitant]
     Indication: PRODUCT USED FOR UNKNOWN INDICATION
  5. ESKIM [Concomitant]
     Indication: PRODUCT USED FOR UNKNOWN INDICATION
  6. OMEGA-3 POLIENOIC [Concomitant]
     Indication: HYPERTRIGLYCERIDAEMIA
  7. NSAID'S [Concomitant]
     Indication: RHEUMATOID ARTHRITIS
  8. CORTISONIC AGENTS [Concomitant]
     Indication: RHEUMATOID ARTHRITIS
  9. METHOTREXATE [Concomitant]
     Indication: RHEUMATOID ARTHRITIS

REACTIONS (1)
  - MYOCARDIAL INFARCTION [None]
